FAERS Safety Report 16694462 (Version 2)
Quarter: 2021Q1

REPORT INFORMATION
  Report Type: Spontaneous
  Country: US (occurrence: US)
  Receive Date: 20190812
  Receipt Date: 20210216
  Transmission Date: 20210419
  Serious: Yes (Other)
  Sender: FDA-Public Use
  Company Number: US-BAYER-2019-144727

PATIENT
  Age: 38 Year
  Sex: Female

DRUGS (4)
  1. ITRACONAZOLE. [Concomitant]
     Active Substance: ITRACONAZOLE
  2. PARACETAMOL [Suspect]
     Active Substance: ACETAMINOPHEN
     Indication: NASAL CONGESTION
  3. PARACETAMOL [Suspect]
     Active Substance: ACETAMINOPHEN
     Indication: FACIAL PAIN
  4. PARACETAMOL [Suspect]
     Active Substance: ACETAMINOPHEN
     Indication: OROPHARYNGEAL PAIN
     Dosage: FREQUENT INTRANASAL USE OF CRUSHED ACETAMINOPHEN TABLETS
     Route: 045

REACTIONS (8)
  - Candida infection [Unknown]
  - Wrong technique in product usage process [Recovered/Resolved]
  - Aspergillus infection [Unknown]
  - Incorrect route of product administration [Recovered/Resolved]
  - Mucosal necrosis [Unknown]
  - Sinusitis [Recovered/Resolved]
  - Staphylococcal infection [Unknown]
  - Intentional product misuse [Recovered/Resolved]
